FAERS Safety Report 5588056-4 (Version None)
Quarter: 2008Q1

REPORT INFORMATION
  Report Type: 
  Country: None (occurrence: None)
  Receive Date: 20080111
  Receipt Date: 20071229
  Transmission Date: 20080703
  Serious: Yes (Other)
  Sender: FDA-Public Use
  Company Number: US-PFIZER INC-2008000270

PATIENT
  Sex: Male

DRUGS (16)
  1. NEURONTIN [Suspect]
     Indication: DIABETIC NEUROPATHY
  2. NEURONTIN [Suspect]
     Indication: BACK PAIN
  3. LYRICA [Suspect]
     Indication: DIABETIC NEUROPATHY
     Dates: start: 20070101, end: 20071201
  4. CHANTIX [Suspect]
     Indication: SMOKING CESSATION THERAPY
     Dates: start: 20070101, end: 20071201
  5. TRILEPTAL [Suspect]
     Indication: DIABETIC NEUROPATHY
  6. TRILEPTAL [Suspect]
     Indication: BACK PAIN
  7. LISINOPRIL [Concomitant]
  8. METOPROLOL [Concomitant]
  9. PLAVIX [Concomitant]
  10. ACETYLSALICYLIC ACID SRT [Concomitant]
  11. FLOMAX [Concomitant]
  12. CYMBALTA [Concomitant]
  13. EFFEXOR [Concomitant]
  14. KLONOPIN [Concomitant]
  15. ROZEREM [Concomitant]
  16. PERCOCET [Concomitant]

REACTIONS (13)
  - COGNITIVE DISORDER [None]
  - DEPRESSION [None]
  - DRUG INEFFECTIVE [None]
  - DRY MOUTH [None]
  - DYSPNOEA [None]
  - FEELING ABNORMAL [None]
  - INSOMNIA [None]
  - MYDRIASIS [None]
  - PAIN [None]
  - SLUGGISHNESS [None]
  - STOMACH DISCOMFORT [None]
  - UNDERDOSE [None]
  - VASCULAR GRAFT [None]
